FAERS Safety Report 25243419 (Version 4)
Quarter: 2025Q2

REPORT INFORMATION
  Report Type: Spontaneous
  Country: JP (occurrence: JP)
  Receive Date: 20250428
  Receipt Date: 20250618
  Transmission Date: 20250717
  Serious: Yes (Life-Threatening, Other)
  Sender: BRISTOL-MYERS SQUIBB COMPANY
  Company Number: JP-BRISTOL-MYERS SQUIBB COMPANY-2025-030967

PATIENT
  Age: 76 Year
  Sex: Female
  Weight: 51.7 kg

DRUGS (2)
  1. YERVOY [Suspect]
     Active Substance: IPILIMUMAB
     Indication: Metastatic renal cell carcinoma
     Route: 041
     Dates: start: 20241204, end: 20241204
  2. OPDIVO [Suspect]
     Active Substance: NIVOLUMAB
     Indication: Metastatic renal cell carcinoma
     Route: 041
     Dates: start: 20241204, end: 20241204

REACTIONS (2)
  - Immune-mediated thyroiditis [Recovering/Resolving]
  - Tracheal stenosis [Unknown]

NARRATIVE: CASE EVENT DATE: 20241211
